APPROVED DRUG PRODUCT: PHENDIMETRAZINE TARTRATE
Active Ingredient: PHENDIMETRAZINE TARTRATE
Strength: 35MG
Dosage Form/Route: TABLET;ORAL
Application: A085941 | Product #001
Applicant: CHARTWELL RX SCIENCES LLC
Approved: Jun 27, 1983 | RLD: No | RS: No | Type: DISCN